FAERS Safety Report 6296916-4 (Version None)
Quarter: 2009Q3

REPORT INFORMATION
  Report Type: 
  Country: None (occurrence: None)
  Receive Date: 20090730
  Receipt Date: 20090717
  Transmission Date: 20100115
  Serious: Yes (Hospitalization)
  Sender: FDA-Public Use
  Company Number: THYM-1001109

PATIENT
  Age: 48 Year
  Sex: Female
  Weight: 107.5 kg

DRUGS (10)
  1. THYMOGLOBULIN [Suspect]
     Indication: BONE MARROW TRANSPLANT
     Dosage: 0.5 MG/KG, 2 MG/KG, 2 MG/KG
     Dates: start: 20090526, end: 20090528
  2. THYMOGLOBULIN [Suspect]
     Indication: BONE MARROW TRANSPLANT
     Dosage: 0.5 MG/KG, 2 MG/KG, 2 MG/KG
     Dates: start: 20090526, end: 20090528
  3. THYMOGLOBULIN [Suspect]
     Indication: BONE MARROW TRANSPLANT
     Dosage: 0.5 MG/KG, 2 MG/KG, 2 MG/KG
     Dates: start: 20090526, end: 20090528
  4. CYCLOSPORINE [Concomitant]
  5. PANTOPRAZOLE SODIUM [Concomitant]
  6. ACYCLOVIR [Concomitant]
  7. POSACONAZOLE [Concomitant]
  8. METOCLOPRAMIDE [Concomitant]
  9. ONDANSETRON [Concomitant]
  10. COLONYTELY (SODIUM BICARBONATE) [Concomitant]

REACTIONS (11)
  - ACUTE GRAFT VERSUS HOST DISEASE IN SKIN [None]
  - ATAXIA [None]
  - BLOOD CULTURE POSITIVE [None]
  - BODY TEMPERATURE INCREASED [None]
  - CYTOMEGALOVIRUS INFECTION [None]
  - DIARRHOEA [None]
  - EPSTEIN-BARR VIRUS ANTIBODY POSITIVE [None]
  - INFECTION [None]
  - MUSCULAR WEAKNESS [None]
  - STAPHYLOCOCCAL SEPSIS [None]
  - THERAPEUTIC AGENT TOXICITY [None]
